FAERS Safety Report 11768938 (Version 1)
Quarter: 2015Q4

REPORT INFORMATION
  Report Type: Other
  Country: GB (occurrence: GB)
  Receive Date: 20151123
  Receipt Date: 20151123
  Transmission Date: 20160304
  Serious: Yes (Hospitalization, Other)
  Sender: FDA-Public Use
  Company Number: GB-MYLANLABS-2015M1040451

PATIENT

DRUGS (13)
  1. BUMETANIDE. [Concomitant]
     Active Substance: BUMETANIDE
     Indication: HYPERTENSION
     Dosage: 2 MG, QD
     Route: 048
     Dates: start: 20091113
  2. IDARUCIZUMAB [Suspect]
     Active Substance: IDARUCIZUMAB
     Indication: UPPER GASTROINTESTINAL HAEMORRHAGE
     Dosage: 5 G, QD
     Route: 042
     Dates: start: 20151016, end: 20151016
  3. COCODAMOL [Concomitant]
     Active Substance: ACETAMINOPHEN\CODEINE PHOSPHATE
     Indication: ARTHRITIS
     Dosage: 8 ANZ
     Route: 048
     Dates: start: 201407
  4. RAMIPRIL. [Concomitant]
     Active Substance: RAMIPRIL
     Indication: HYPERTENSION
     Dosage: 10 MG, QD
     Route: 048
     Dates: start: 20091113
  5. DIHYDROCODEINE [Suspect]
     Active Substance: DIHYDROCODEINE
     Indication: PRODUCT USED FOR UNKNOWN INDICATION
     Route: 065
  6. CALCICHEW D3 FORTE [Concomitant]
     Active Substance: CALCIUM\CHOLECALCIFEROL
     Indication: MINERAL SUPPLEMENTATION
     Dosage: 1 ANZ
     Route: 048
     Dates: start: 20151027
  7. DALTEPARIN [Concomitant]
     Active Substance: DALTEPARIN
     Indication: THROMBOSIS PROPHYLAXIS
     Dosage: 500 IU, QD
     Route: 058
     Dates: start: 20151020
  8. FERINJECT [Concomitant]
     Active Substance: FERRIC CARBOXYMALTOSE
     Indication: PRODUCT USED FOR UNKNOWN INDICATION
     Dosage: UNK
     Route: 065
     Dates: start: 20151019
  9. ALLOPURINOL. [Concomitant]
     Active Substance: ALLOPURINOL
     Indication: GOUT
     Dosage: 300 MG, QD
     Route: 048
     Dates: start: 20040712
  10. OMEPRAZOLE. [Suspect]
     Active Substance: OMEPRAZOLE
     Indication: PROPHYLAXIS
     Dosage: 40 MG, QD
     Route: 048
     Dates: start: 20151020
  11. PRADAXA [Suspect]
     Active Substance: DABIGATRAN ETEXILATE MESYLATE
     Indication: ATRIAL FIBRILLATION
     Dosage: 110 MG, BID
     Route: 065
  12. SODIUM BICARBONATE. [Concomitant]
     Active Substance: SODIUM BICARBONATE
     Indication: RENAL DISORDER
     Dosage: 3 G, QD
     Route: 048
     Dates: start: 20060707
  13. BISOPROLOL [Concomitant]
     Active Substance: BISOPROLOL
     Indication: ATRIAL FIBRILLATION
     Dosage: 3.75 MG, QD
     Route: 048
     Dates: start: 20151005

REACTIONS (8)
  - Upper gastrointestinal haemorrhage [Recovered/Resolved]
  - Contusion [Recovered/Resolved]
  - Blood bilirubin increased [Not Recovered/Not Resolved]
  - Haematemesis [Recovered/Resolved]
  - Haemorrhage [Unknown]
  - Skin haemorrhage [Recovered/Resolved]
  - Alanine aminotransferase increased [Not Recovered/Not Resolved]
  - Melaena [Recovered/Resolved]

NARRATIVE: CASE EVENT DATE: 20151022
